FAERS Safety Report 9000345 (Version 2)
Quarter: 2013Q1

REPORT INFORMATION
  Report Type: Spontaneous
  Country: US (occurrence: None)
  Receive Date: 20121221
  Receipt Date: 20130213
  Transmission Date: 20140127
  Serious: Yes (Hospitalization)
  Sender: FDA-Public Use
  Company Number: JPI-P-026824

PATIENT
  Age: 70 Year
  Sex: Female
  Weight: 46.27 kg

DRUGS (5)
  1. XYREM [Suspect]
     Indication: NARCOLEPSY
     Route: 048
     Dates: start: 20121007, end: 20121010
  2. XYREM [Suspect]
     Indication: SOMNOLENCE
     Route: 048
     Dates: start: 20121007, end: 20121010
  3. UNSPECIFIED MEDICATIONS [Suspect]
  4. UNSPECIFIED MEDICATION TO CONTROL ANXIETY [Concomitant]
  5. UNSPECIFIED MEDICATION TO CONTROL DEPRESSION [Concomitant]

REACTIONS (4)
  - Anxiety [None]
  - Depression [None]
  - Weight increased [None]
  - Urticaria [None]
